FAERS Safety Report 16046741 (Version 19)
Quarter: 2024Q4

REPORT INFORMATION
  Report Type: Spontaneous
  Country: US (occurrence: US)
  Receive Date: 20190307
  Receipt Date: 20241212
  Transmission Date: 20250114
  Serious: Yes (Other)
  Sender: PFIZER
  Company Number: US-PFIZER INC-2019091452

PATIENT
  Age: 81 Year
  Sex: Female
  Weight: 58.95 kg

DRUGS (9)
  1. TIKOSYN [Suspect]
     Active Substance: DOFETILIDE
     Indication: Arrhythmia
     Dosage: 125 UG, 2X/DAY
     Route: 048
     Dates: start: 201811
  2. PANTOPRAZOLE [Concomitant]
     Active Substance: PANTOPRAZOLE
     Indication: Gastrooesophageal reflux disease
     Dosage: 20 MG, 1X/DAY
  3. ELIQUIS [Concomitant]
     Active Substance: APIXABAN
     Indication: Anticoagulant therapy
     Dosage: 2.5 MG, 2X/DAY
     Route: 048
  4. AMLODIPINE [Concomitant]
     Active Substance: AMLODIPINE BESYLATE
     Indication: Blood pressure abnormal
     Dosage: 2.5 MG, 2X/DAY
     Route: 048
  5. MONTELUKAST [Concomitant]
     Active Substance: MONTELUKAST
     Indication: Seasonal allergy
     Dosage: UNK UNK, AS NEEDED
  6. AZMACORT [Concomitant]
     Active Substance: TRIAMCINOLONE ACETONIDE
     Indication: Seasonal allergy
     Dosage: UNK UNK, AS NEEDED
     Route: 055
  7. BUSPIRONE [Concomitant]
     Active Substance: BUSPIRONE HYDROCHLORIDE
     Indication: Anxiety
     Dosage: 15 MG
  8. BUSPIRONE [Concomitant]
     Active Substance: BUSPIRONE HYDROCHLORIDE
     Dosage: 5 MG
  9. XANAX [Concomitant]
     Active Substance: ALPRAZOLAM
     Indication: Anxiety
     Dosage: 0.25 MG, AS NEEDED

REACTIONS (15)
  - Atrial fibrillation [Recovering/Resolving]
  - Sciatica [Not Recovered/Not Resolved]
  - Rheumatoid arthritis [Not Recovered/Not Resolved]
  - Drug ineffective [Unknown]
  - Product prescribing error [Unknown]
  - Osteoporosis [Not Recovered/Not Resolved]
  - Supraventricular extrasystoles [Unknown]
  - Sinus bradycardia [Unknown]
  - Anxiety [Unknown]
  - Arthralgia [Unknown]
  - Nervousness [Unknown]
  - Cardiac disorder [Unknown]
  - Dyspnoea [Unknown]
  - Gait disturbance [Not Recovered/Not Resolved]
  - Pain [Unknown]

NARRATIVE: CASE EVENT DATE: 20181117
